FAERS Safety Report 23225709 (Version 2)
Quarter: 2024Q3

REPORT INFORMATION
  Report Type: Spontaneous
  Country: US (occurrence: US)
  Receive Date: 20231124
  Receipt Date: 20240718
  Transmission Date: 20241016
  Serious: No
  Sender: SANOFI AVENTIS
  Company Number: US-SA-SAC20231117000610

PATIENT
  Age: 2 Year
  Sex: Male
  Weight: 15.4 kg

DRUGS (2)
  1. DUPIXENT [Suspect]
     Active Substance: DUPILUMAB
     Indication: Dermatitis atopic
     Dosage: 200 MG, Q4W
     Route: 058
  2. DUPIXENT [Suspect]
     Active Substance: DUPILUMAB
     Dosage: 200 MG, Q6W
     Route: 058

REACTIONS (4)
  - Hand-foot-and-mouth disease [Unknown]
  - Pruritus [Unknown]
  - Off label use [Unknown]
  - Inappropriate schedule of product administration [Unknown]
